FAERS Safety Report 10944820 (Version 1)
Quarter: 2015Q1

REPORT INFORMATION
  Report Type: Spontaneous
  Country: FR (occurrence: None)
  Receive Date: 20150318
  Receipt Date: 20150318
  Transmission Date: 20150721
  Serious: Yes (Other)
  Sender: FDA-Public Use
  Company Number: 20150724

PATIENT
  Sex: Female

DRUGS (1)
  1. METHOTREXATE (METHOTREXATE) [Suspect]
     Active Substance: METHOTREXATE
     Indication: ECTOPIC PREGNANCY TERMINATION
     Route: 030

REACTIONS (4)
  - Haemorrhage [None]
  - Post procedural complication [None]
  - Device related infection [None]
  - Urinary tract infection [None]
